FAERS Safety Report 7805914-8 (Version None)
Quarter: 2011Q4

REPORT INFORMATION
  Report Type: 
  Country: None (occurrence: None)
  Receive Date: 20111011
  Receipt Date: 20111003
  Transmission Date: 20120403
  Serious: No
  Sender: FDA-Public Use
  Company Number: US-BIOGENIDEC-2011BI037706

PATIENT
  Age: 52 Year
  Sex: Female

DRUGS (2)
  1. AVONEX [Suspect]
     Indication: MULTIPLE SCLEROSIS
     Route: 030
     Dates: start: 20101101, end: 20110921
  2. AVONEX [Suspect]
     Route: 030
     Dates: start: 19980801, end: 20070901

REACTIONS (4)
  - PARAESTHESIA [None]
  - TREMOR [None]
  - BACK PAIN [None]
  - DEPRESSED MOOD [None]
